FAERS Safety Report 17260584 (Version 1)
Quarter: 2020Q1

REPORT INFORMATION
  Report Type: Spontaneous
  Country: DK (occurrence: DK)
  Receive Date: 20200113
  Receipt Date: 20200113
  Transmission Date: 20200409
  Serious: Yes (Other)
  Sender: FDA-Public Use
  Company Number: DK-AMGEN-DNKSP2020003678

PATIENT

DRUGS (3)
  1. CARFILZOMIB [Suspect]
     Active Substance: CARFILZOMIB
     Indication: PLASMA CELL MYELOMA
     Dosage: 20 MG/M2-36 MG/M2 ON DAYS 1, 2, 8, 9, 15 AND 16,
     Route: 042
  2. DEXAMETHASONE. [Suspect]
     Active Substance: DEXAMETHASONE
     Indication: PLASMA CELL MYELOMA
     Dosage: 20 MILLIGRAM ON DAYS 1, 2, 8, 9, 15 AND 16 IN EACH 28-DAYS CYCLE
     Route: 065
  3. CYCLOPHOSPHAMIDE. [Suspect]
     Active Substance: CYCLOPHOSPHAMIDE
     Indication: PLASMA CELL MYELOMA
     Dosage: 300 MILLIGRAM/SQ. METER ON DAYS 1, 8 AND 15
     Route: 065

REACTIONS (7)
  - Pulmonary embolism [Unknown]
  - Dyspnoea [Unknown]
  - Syncope [Unknown]
  - Sepsis [Unknown]
  - Viral infection [Unknown]
  - Pneumonia [Unknown]
  - Atrial fibrillation [Unknown]
